FAERS Safety Report 5051971-4 (Version None)
Quarter: 2006Q3

REPORT INFORMATION
  Report Type: 
  Country: None (occurrence: None)
  Receive Date: 20060711
  Receipt Date: 20060616
  Transmission Date: 20061208
  Serious: Yes (Other)
  Sender: FDA-Public Use
  Company Number: US_0509122476

PATIENT
  Age: 50 Year
  Sex: Female

DRUGS (6)
  1. ZYPREXA [Suspect]
     Indication: BIPOLAR DISORDER
     Dosage: 5 MG, ORAL; 10  MG, ORAL
     Route: 048
     Dates: start: 19970301, end: 20040525
  2. ZYPREXA [Suspect]
     Indication: BIPOLAR DISORDER
     Dosage: 5 MG, ORAL; 10  MG, ORAL
     Route: 048
     Dates: start: 19970301, end: 20040525
  3. RISPERIDONE  JANSSEN   (RISPERIDONE) [Concomitant]
  4. EFFEXOR [Concomitant]
  5. CLONAZEPAM [Concomitant]
  6. PROTONIX [Concomitant]

REACTIONS (9)
  - ASTHENIA [None]
  - DIABETES MELLITUS NON-INSULIN-DEPENDENT [None]
  - FATIGUE [None]
  - HYPOAESTHESIA [None]
  - HYPOAESTHESIA FACIAL [None]
  - PARAESTHESIA [None]
  - POLYURIA [None]
  - RENAL FAILURE [None]
  - THYROID DISORDER [None]
